APPROVED DRUG PRODUCT: GLIPIZIDE
Active Ingredient: GLIPIZIDE
Strength: 5MG
Dosage Form/Route: TABLET, EXTENDED RELEASE;ORAL
Application: A204720 | Product #002 | TE Code: AB
Applicant: UNIQUE PHARMACEUTICAL LABORATORIES A DIV OF JB CHEMICALS AND PHARMACEUTICALS LTD
Approved: Dec 29, 2016 | RLD: No | RS: No | Type: RX